FAERS Safety Report 25120168 (Version 1)
Quarter: 2025Q1

REPORT INFORMATION
  Report Type: Spontaneous
  Country: FR (occurrence: FR)
  Receive Date: 20250325
  Receipt Date: 20250325
  Transmission Date: 20250409
  Serious: Yes (Hospitalization)
  Sender: MYLAN
  Company Number: FR-Accord-473671

PATIENT
  Age: 34 Year
  Sex: Male

DRUGS (1)
  1. PREGABALIN [Suspect]
     Active Substance: PREGABALIN
     Indication: Product used for unknown indication
     Dosage: QD, DAILY PREGABALIN INTAKE OF BETWEEN 1,200 AND 2,000 MG PER DAY

REACTIONS (4)
  - Toxicity to various agents [Unknown]
  - Drug use disorder [Unknown]
  - Withdrawal syndrome [Unknown]
  - Drug dependence [Unknown]
